FAERS Safety Report 23563554 (Version 3)
Quarter: 2024Q3

REPORT INFORMATION
  Report Type: Spontaneous
  Country: US (occurrence: US)
  Receive Date: 20240226
  Receipt Date: 20240726
  Transmission Date: 20241016
  Serious: No
  Sender: LUNDBECK
  Company Number: US-LUNDBECK-DKLU3073871

PATIENT

DRUGS (5)
  1. VYEPTI [Suspect]
     Active Substance: EPTINEZUMAB\EPTINEZUMAB-JJMR
     Indication: Migraine
     Dosage: 100 003
     Route: 041
     Dates: start: 20240130
  2. VYEPTI [Suspect]
     Active Substance: EPTINEZUMAB\EPTINEZUMAB-JJMR
     Dosage: 300 003
     Route: 041
  3. QULIPTA [Concomitant]
     Active Substance: ATOGEPANT
     Indication: Product used for unknown indication
  4. TOPIRAMATE [Concomitant]
     Active Substance: TOPIRAMATE
     Indication: Product used for unknown indication
     Dosage: 200 003
  5. ELETRIPTAN [Concomitant]
     Active Substance: ELETRIPTAN
     Indication: Product used for unknown indication

REACTIONS (2)
  - Migraine [Not Recovered/Not Resolved]
  - Headache [Not Recovered/Not Resolved]
